FAERS Safety Report 5522824-X (Version None)
Quarter: 2007Q4

REPORT INFORMATION
  Report Type: 
  Country: None (occurrence: None)
  Receive Date: 20071120
  Receipt Date: 20071112
  Transmission Date: 20080405
  Serious: Yes (Other)
  Sender: FDA-Public Use
  Company Number: JP-MERCK-0710USA02401

PATIENT
  Age: 81 Year
  Sex: Female

DRUGS (2)
  1. PEPCID RPD [Suspect]
     Route: 048
     Dates: start: 20070913, end: 20071004
  2. ACETYLSPIRAMYCIN [Concomitant]
     Route: 048
     Dates: start: 20070913, end: 20071004

REACTIONS (1)
  - IDIOPATHIC THROMBOCYTOPENIC PURPURA [None]
